FAERS Safety Report 7612844-3 (Version None)
Quarter: 2011Q3

REPORT INFORMATION
  Report Type: 
  Country: None (occurrence: None)
  Receive Date: 20110708
  Receipt Date: 20110705
  Transmission Date: 20111222
  Serious: Yes (Hospitalization)
  Sender: FDA-Public Use
  Company Number: AXC-2011-000286

PATIENT
  Age: 59 Year
  Sex: Female

DRUGS (1)
  1. URSODIOL [Suspect]
     Indication: BILE DUCT STONE
     Dosage: ORAL
     Route: 048
     Dates: end: 20090101

REACTIONS (2)
  - BILE DUCT STONE [None]
  - CHOLEDOCHOLITHOTOMY [None]
